FAERS Safety Report 13067041 (Version 1)
Quarter: 2016Q4

REPORT INFORMATION
  Report Type: Spontaneous
  Country: GR (occurrence: GR)
  Receive Date: 20161227
  Receipt Date: 20161227
  Transmission Date: 20170207
  Serious: Yes (Other)
  Sender: FDA-Public Use
  Company Number: GR-BAUSCH-BL-2016-032051

PATIENT
  Age: 17 Year
  Sex: Male

DRUGS (9)
  1. ALL-TRANSRETINOIC ACID [Suspect]
     Active Substance: TRETINOIN
     Route: 065
  2. ALL-TRANSRETINOIC ACID [Suspect]
     Active Substance: TRETINOIN
     Dosage: EVERY 3 MONTHS
     Route: 065
  3. IDARUBICIN [Suspect]
     Active Substance: IDARUBICIN
     Route: 065
  4. ARSENIC TRIOXIDE [Suspect]
     Active Substance: ARSENIC TRIOXIDE
     Indication: ACUTE PROMYELOCYTIC LEUKAEMIA
     Route: 042
  5. 6-MERCAPTOPURINE [Concomitant]
     Active Substance: MERCAPTOPURINE
     Indication: ACUTE PROMYELOCYTIC LEUKAEMIA
     Route: 048
  6. METHOTREXATE. [Concomitant]
     Active Substance: METHOTREXATE
     Indication: ACUTE PROMYELOCYTIC LEUKAEMIA
  7. ALL-TRANSRETINOIC ACID [Suspect]
     Active Substance: TRETINOIN
     Indication: ACUTE PROMYELOCYTIC LEUKAEMIA
     Route: 048
  8. IDARUBICIN [Suspect]
     Active Substance: IDARUBICIN
     Indication: ACUTE PROMYELOCYTIC LEUKAEMIA
     Dosage: ON DAYS 2, 4, 6, 8
     Route: 042
  9. MITOXANTRONE [Concomitant]
     Active Substance: MITOXANTRONE HYDROCHLORIDE
     Indication: ACUTE PROMYELOCYTIC LEUKAEMIA

REACTIONS (2)
  - Benign intracranial hypertension [Unknown]
  - Myocarditis [Recovered/Resolved]
